FAERS Safety Report 5156236-8 (Version None)
Quarter: 2006Q4

REPORT INFORMATION
  Report Type: 
  Country: None (occurrence: None)
  Receive Date: 20061122
  Receipt Date: 20061110
  Transmission Date: 20070319
  Serious: Yes (Hospitalization)
  Sender: FDA-Public Use
  Company Number: DE-ABBOTT-06P-062-0350041-00

PATIENT
  Age: 64 Year
  Sex: Female

DRUGS (6)
  1. HUMIRA [Suspect]
     Indication: RHEUMATOID ARTHRITIS
     Dates: start: 20060501, end: 20060602
  2. HUMIRA [Suspect]
  3. PREDNISONE TAB [Concomitant]
     Indication: RHEUMATOID ARTHRITIS
     Route: 048
  4. PREDNISONE TAB [Concomitant]
  5. ANALGESICS [Concomitant]
     Indication: RHEUMATOID ARTHRITIS
  6. NSAID'S [Concomitant]
     Indication: RHEUMATOID ARTHRITIS
     Route: 048

REACTIONS (3)
  - IMPAIRED HEALING [None]
  - POOR PERIPHERAL CIRCULATION [None]
  - RHEUMATOID ARTHRITIS [None]
